FAERS Safety Report 6854031-2 (Version None)
Quarter: 2010Q3

REPORT INFORMATION
  Report Type: 
  Country: None (occurrence: None)
  Receive Date: 20100717
  Receipt Date: 20071224
  Transmission Date: 20110219
  Serious: No
  Sender: FDA-Public Use
  Company Number: US-PFIZER INC-2008000157

PATIENT
  Sex: Female
  Weight: 117.93 kg

DRUGS (7)
  1. CHANTIX [Suspect]
     Indication: SMOKING CESSATION THERAPY
     Dates: start: 20071207
  2. CELEBREX [Concomitant]
  3. NEXIUM [Concomitant]
     Indication: GASTROOESOPHAGEAL REFLUX DISEASE
  4. TOPROL-XL [Concomitant]
     Indication: BLOOD PRESSURE ABNORMAL
  5. XOPENEX [Concomitant]
     Indication: EMPHYSEMA
  6. ATROVENT [Concomitant]
     Indication: EMPHYSEMA
  7. ADVAIR DISKUS 100/50 [Concomitant]
     Indication: EMPHYSEMA
     Route: 055

REACTIONS (15)
  - ANXIETY [None]
  - DIZZINESS [None]
  - FATIGUE [None]
  - HEADACHE [None]
  - HOSTILITY [None]
  - HYPERPHAGIA [None]
  - IMPATIENCE [None]
  - INCORRECT DOSE ADMINISTERED [None]
  - INSOMNIA [None]
  - IRRITABILITY [None]
  - NAUSEA [None]
  - RESTLESSNESS [None]
  - TENSION [None]
  - TREMOR [None]
  - WEIGHT INCREASED [None]
